FAERS Safety Report 20573792 (Version 2)
Quarter: 2022Q1

REPORT INFORMATION
  Report Type: Report from Study
  Country: US (occurrence: US)
  Receive Date: 20220309
  Receipt Date: 20220314
  Transmission Date: 20220424
  Serious: Yes (Hospitalization, Other)
  Sender: FDA-Public Use
  Company Number: US-TAKEDA-2022TUS015142

PATIENT
  Age: 9 Year
  Sex: Male

DRUGS (1)
  1. IDURSULFASE [Suspect]
     Active Substance: IDURSULFASE
     Indication: Mucopolysaccharidosis II
     Dosage: 0.59 MILLIGRAM/KILOGRAM, 1/WEEK
     Route: 042
     Dates: start: 20171013

REACTIONS (2)
  - Staphylococcal bacteraemia [Recovered/Resolved]
  - Vascular device infection [Recovered/Resolved]

NARRATIVE: CASE EVENT DATE: 20211213
